FAERS Safety Report 21713520 (Version 1)
Quarter: 2022Q4

REPORT INFORMATION
  Report Type: Spontaneous
  Country: GB (occurrence: GB)
  Receive Date: 20221212
  Receipt Date: 20221212
  Transmission Date: 20230113
  Serious: Yes (Other)
  Sender: FDA-Public Use
  Company Number: None

PATIENT
  Sex: Female

DRUGS (6)
  1. HYDROXYCHLOROQUINE SULFATE [Suspect]
     Active Substance: HYDROXYCHLOROQUINE SULFATE
     Indication: Connective tissue disorder
     Dosage: TAKING 200 MG PER DAY MONDAY-FRIDAY, FOR ABOUT TWO YEARS
  2. ACETAMINOPHEN [Suspect]
     Active Substance: ACETAMINOPHEN
     Indication: Pain
  3. NORETHINDRONE [Concomitant]
     Active Substance: NORETHINDRONE
     Dosage: 350MG NORETHISTERONE DAILY
  4. PAROXETINE [Concomitant]
     Active Substance: PAROXETINE
     Dosage: 20MG PAROXETINE DAILY
  5. ASPIRIN [Concomitant]
     Active Substance: ASPIRIN
     Dosage: 75 MG ASPIRIN DAILY
  6. HYDROXYCHLOROQUINE SULFATE [Suspect]
     Active Substance: HYDROXYCHLOROQUINE SULFATE
     Indication: Connective tissue disorder
     Dosage: 200 MG TWICE A DAY

REACTIONS (7)
  - Therapeutic response unexpected [Unknown]
  - Product dose omission issue [Unknown]
  - Therapeutic response shortened [Unknown]
  - Blood glucose abnormal [Unknown]
  - Lethargy [Unknown]
  - Panic attack [Unknown]
  - Postprandial hypoglycaemia [Unknown]

NARRATIVE: CASE EVENT DATE: 20200201
